FAERS Safety Report 5215169-9 (Version None)
Quarter: 2007Q1

REPORT INFORMATION
  Report Type: 
  Country: None (occurrence: None)
  Receive Date: 20070117
  Receipt Date: 20061229
  Transmission Date: 20070707
  Serious: Yes (Hospitalization)
  Sender: FDA-Public Use
  Company Number: CIP06002951

PATIENT
  Age: 74 Year
  Sex: Female

DRUGS (6)
  1. ACTONEL [Suspect]
     Indication: OSTEOPOROSIS
     Dosage: 2.5 MG DAILY ORAL
     Route: 048
     Dates: start: 20061124, end: 20061130
  2. OPALMON (LIMAPROST) [Concomitant]
  3. CLARITIN [Concomitant]
  4. BENIDIPINE HYDROCHLORIDE (BENIDIPINE HYDROCHLORIDE) [Concomitant]
  5. KAMAG G (MAGNESIUM OXIDE) [Concomitant]
  6. GLICLAZIDE [Concomitant]

REACTIONS (6)
  - ALANINE AMINOTRANSFERASE INCREASED [None]
  - ANOREXIA [None]
  - ASPARTATE AMINOTRANSFERASE INCREASED [None]
  - LIVER DISORDER [None]
  - MALAISE [None]
  - STOMACH DISCOMFORT [None]
